FAERS Safety Report 11106567 (Version 1)
Quarter: 2015Q2

REPORT INFORMATION
  Report Type: Spontaneous
  Country: TR (occurrence: None)
  Receive Date: 20150508
  Receipt Date: 20150508
  Transmission Date: 20150821
  Serious: Yes (Other)
  Sender: FDA-Public Use
  Company Number: FK201502091

PATIENT
  Age: 3 Day
  Sex: Female

DRUGS (2)
  1. HALOPERIDOL INJECTION (MANUFACTURER UNKNOWN) (HALOPERIDOL LACTATE) (HALOPERIDOL LACTATE) [Suspect]
     Active Substance: HALOPERIDOL LACTATE
     Dosage: 20 MG, VIA BREAST MILK
     Route: 064
  2. HALOPERIDOL INJECTION (MANUFACTURER UNKNOWN) (HALOPERIDOL LACTATE) (HALOPERIDOL LACTATE) [Suspect]
     Active Substance: HALOPERIDOL LACTATE
     Indication: PSYCHOTIC DISORDER
     Dosage: 20 MG, VIA BREAST MILK
     Route: 064

REACTIONS (12)
  - Haemoconcentration [None]
  - Fever neonatal [None]
  - Dehydration [None]
  - Decreased activity [None]
  - Maternal drugs affecting foetus [None]
  - Exposure during breast feeding [None]
  - Poor feeding infant [None]
  - Hypotonia neonatal [None]
  - Nephrogenic diabetes insipidus [None]
  - Irritability [None]
  - Hyporeflexia [None]
  - Drug withdrawal syndrome neonatal [None]
